FAERS Safety Report 8049887-4 (Version None)
Quarter: 2012Q1

REPORT INFORMATION
  Report Type: 
  Country: None (occurrence: None)
  Receive Date: 20120117
  Receipt Date: 20120113
  Transmission Date: 20120608
  Serious: No
  Sender: FDA-Public Use
  Company Number: US-PFIZER INC-2012010952

PATIENT
  Sex: Female
  Weight: 63.492 kg

DRUGS (2)
  1. PREMARIN [Concomitant]
     Dosage: UNK
  2. LIPITOR [Suspect]
     Indication: BLOOD CHOLESTEROL INCREASED
     Dosage: UNK, 1X/DAY
     Route: 048
     Dates: start: 20040101, end: 20090101

REACTIONS (1)
  - BLOOD CHOLESTEROL INCREASED [None]
